FAERS Safety Report 8281986-4 (Version None)
Quarter: 2012Q2

REPORT INFORMATION
  Report Type: 
  Country: None (occurrence: None)
  Receive Date: 20120410
  Receipt Date: 20120328
  Transmission Date: 20120825
  Serious: Yes (Other)
  Sender: FDA-Public Use
  Company Number: ADR-2011-10563

PATIENT

DRUGS (1)
  1. LIORESAL [Suspect]
     Indication: MUSCLE SPASTICITY
     Dosage: MCG, DAILY, INTRATH
     Route: 037

REACTIONS (6)
  - UNDERDOSE [None]
  - DEVICE BREAKAGE [None]
  - DEVICE CONNECTION ISSUE [None]
  - MUSCLE SPASTICITY [None]
  - HYPOTONIA [None]
  - THERAPEUTIC RESPONSE DECREASED [None]
